FAERS Safety Report 11619734 (Version 1)
Quarter: 2015Q4

REPORT INFORMATION
  Report Type: Spontaneous
  Country: US (occurrence: US)
  Receive Date: 20151012
  Receipt Date: 20151012
  Transmission Date: 20160304
  Serious: No
  Sender: FDA-Public Use
  Company Number: US-ASTRAZENECA-2015SE95708

PATIENT

DRUGS (1)
  1. TUDORZA PRESSAIR [Suspect]
     Active Substance: ACLIDINIUM BROMIDE
     Dosage: 400MCG ONE INHALATION TWICE DAILY
     Route: 055

REACTIONS (3)
  - Condition aggravated [Unknown]
  - Device malfunction [Unknown]
  - Intentional product misuse [Unknown]
